FAERS Safety Report 7324030-5 (Version None)
Quarter: 2011Q1

REPORT INFORMATION
  Report Type: 
  Country: None (occurrence: None)
  Receive Date: 20110217
  Receipt Date: 20110203
  Transmission Date: 20110831
  Serious: Yes (Hospitalization, Disabling)
  Sender: FDA-Public Use
  Company Number: 025282

PATIENT
  Age: 64 Year
  Sex: Female

DRUGS (8)
  1. FOSAMAX [Concomitant]
  2. CIMZIA [Suspect]
     Dosage: 400 MG 1X2 WEEKS, SUBCUTANEOUS
     Route: 058
     Dates: start: 20100624, end: 20101021
  3. FERROUS SULFATE TAB [Concomitant]
  4. PREDNISONE [Concomitant]
  5. ASACOL [Concomitant]
  6. IMURAN [Concomitant]
  7. NIFEREX [Concomitant]
  8. ALBUMIN (HUMAN) [Concomitant]

REACTIONS (45)
  - VOMITING [None]
  - BILIRUBIN CONJUGATED INCREASED [None]
  - NORMOCHROMIC NORMOCYTIC ANAEMIA [None]
  - STAPHYLOCOCCUS TEST POSITIVE [None]
  - DEEP VEIN THROMBOSIS [None]
  - PNEUMOTHORAX [None]
  - NAUSEA [None]
  - ENTEROVESICAL FISTULA [None]
  - RHABDOMYOLYSIS [None]
  - ARTERIAL THROMBOSIS LIMB [None]
  - WHITE BLOOD CELLS URINE POSITIVE [None]
  - RENAL FAILURE ACUTE [None]
  - PLEURAL EFFUSION [None]
  - NECROSIS ISCHAEMIC [None]
  - HEPATITIS CHOLESTATIC [None]
  - RASH [None]
  - GANGRENE [None]
  - CARDIAC DISORDER [None]
  - PROTEIN URINE PRESENT [None]
  - DISSEMINATED INTRAVASCULAR COAGULATION [None]
  - HAEMATOCHEZIA [None]
  - COMPARTMENT SYNDROME [None]
  - GALLBLADDER DISORDER [None]
  - DEVICE RELATED INFECTION [None]
  - BLOOD URINE PRESENT [None]
  - ARTERIOSCLEROSIS [None]
  - PULMONARY ARTERIAL PRESSURE INCREASED [None]
  - SEPTIC SHOCK [None]
  - CIRCULATORY COLLAPSE [None]
  - ASPARTATE AMINOTRANSFERASE INCREASED [None]
  - BLOOD BILIRUBIN INCREASED [None]
  - CLOSTRIDIAL INFECTION [None]
  - LARGE INTESTINE PERFORATION [None]
  - RENAL TUBULAR NECROSIS [None]
  - CHOLELITHIASIS [None]
  - BLOOD CULTURE POSITIVE [None]
  - ACUTE RESPIRATORY DISTRESS SYNDROME [None]
  - ASTHENIA [None]
  - WEIGHT DECREASED [None]
  - ALANINE AMINOTRANSFERASE INCREASED [None]
  - THROMBOCYTOPENIA [None]
  - RED BLOOD CELL SCHISTOCYTES PRESENT [None]
  - HYPOTHERMIA [None]
  - ARTERIOVENOUS FISTULA [None]
  - NEPHROLITHIASIS [None]
